FAERS Safety Report 12836671 (Version 1)
Quarter: 2016Q4

REPORT INFORMATION
  Report Type: Spontaneous
  Country: US (occurrence: US)
  Receive Date: 20161007
  Receipt Date: 20161007
  Transmission Date: 20170207
  Serious: Yes (Other)
  Sender: FDA-Public Use
  Company Number: None

PATIENT
  Age: 74 Year
  Sex: Female
  Weight: 62.25 kg

DRUGS (6)
  1. GLUCOSAMINE [Concomitant]
     Active Substance: GLUCOSAMINE
  2. ERLOTINIB [Concomitant]
     Active Substance: ERLOTINIB
  3. FOLIC ACID. [Concomitant]
     Active Substance: FOLIC ACID
  4. PACRITINIB 100MG CTI BIOPHARMA CORP. [Suspect]
     Active Substance: PACRITINIB
     Indication: NON-SMALL CELL LUNG CANCER
     Route: 048
     Dates: start: 20160811, end: 20160923
  5. CALCIUM +D [Suspect]
     Active Substance: CALCIUM\VITAMIN D
  6. XARELTO [Concomitant]
     Active Substance: RIVAROXABAN

REACTIONS (7)
  - Sinus tachycardia [None]
  - Vision blurred [None]
  - Cerebral artery embolism [None]
  - Dizziness [None]
  - Cerebral infarction [None]
  - Limb discomfort [None]
  - Deep vein thrombosis [None]

NARRATIVE: CASE EVENT DATE: 20160923
